FAERS Safety Report 7879692-0 (Version None)
Quarter: 2011Q4

REPORT INFORMATION
  Report Type: 
  Country: None (occurrence: None)
  Receive Date: 20111101
  Receipt Date: 20111020
  Transmission Date: 20120403
  Serious: No
  Sender: FDA-Public Use
  Company Number: US-ABBOTT-11P-163-0867497-00

PATIENT
  Sex: Female

DRUGS (2)
  1. BIAXIN [Suspect]
     Indication: STAPHYLOCOCCAL INFECTION
     Dates: start: 20110501, end: 20110501
  2. BIAXIN [Suspect]
     Indication: LOCALISED INFECTION

REACTIONS (2)
  - RASH MACULO-PAPULAR [None]
  - RASH [None]
